FAERS Safety Report 9078532 (Version 2)
Quarter: 2013Q1

REPORT INFORMATION
  Report Type: Spontaneous
  Country: CA (occurrence: CA)
  Receive Date: 20130130
  Receipt Date: 20130219
  Transmission Date: 20140127
  Serious: Yes (Hospitalization)
  Sender: FDA-Public Use
  Company Number: CA-JNJFOC-20130113470

PATIENT
  Age: 56 Year
  Sex: Female
  Weight: 52.16 kg

DRUGS (2)
  1. NICORETTE INHALER [Suspect]
     Indication: EX-TOBACCO USER
     Route: 055
     Dates: start: 20130103, end: 20130104
  2. ANTI DEPRESSANT [Concomitant]
     Indication: DEPRESSION
     Route: 065
     Dates: start: 2007

REACTIONS (6)
  - Vomiting [Recovered/Resolved]
  - Nausea [Recovered/Resolved]
  - Abdominal distension [Recovered/Resolved]
  - Dyspnoea [Recovered/Resolved]
  - Abdominal discomfort [Recovered/Resolved]
  - Drug ineffective [Unknown]
